APPROVED DRUG PRODUCT: BUMETANIDE
Active Ingredient: BUMETANIDE
Strength: 1MG
Dosage Form/Route: TABLET;ORAL
Application: A212019 | Product #002 | TE Code: AB
Applicant: RISING PHARMA HOLDINGS INC
Approved: Dec 12, 2019 | RLD: No | RS: No | Type: RX